FAERS Safety Report 5271645-4 (Version None)
Quarter: 2007Q1

REPORT INFORMATION
  Report Type: 
  Country: None (occurrence: None)
  Receive Date: 20070321
  Receipt Date: 20070309
  Transmission Date: 20070707
  Serious: Yes (Hospitalization, Disabling, Other)
  Sender: FDA-Public Use
  Company Number: GB-PFIZER INC-2007002354

PATIENT
  Age: 34 Year
  Sex: Male

DRUGS (3)
  1. EPANUTIN SUSPENSION [Suspect]
     Indication: EPILEPSY
     Route: 048
  2. CLOBAZAM [Concomitant]
     Route: 048
  3. LAMOTRIGINE [Concomitant]

REACTIONS (8)
  - ANTICONVULSANT DRUG LEVEL INCREASED [None]
  - CONVULSION [None]
  - HALLUCINATION, AUDITORY [None]
  - HALLUCINATION, VISUAL [None]
  - MEDICATION ERROR [None]
  - MENTAL STATUS CHANGES [None]
  - TREMOR [None]
  - WEIGHT DECREASED [None]
